FAERS Safety Report 5116538-8 (Version None)
Quarter: 2006Q3

REPORT INFORMATION
  Report Type: 
  Country: None (occurrence: None)
  Receive Date: 20060928
  Receipt Date: 20060912
  Transmission Date: 20061208
  Serious: Yes (Death, Hospitalization)
  Sender: FDA-Public Use
  Company Number: US-AMGEN-US193516

PATIENT
  Sex: Female

DRUGS (3)
  1. ENBREL [Suspect]
     Indication: RHEUMATOID ARTHRITIS
     Route: 058
     Dates: start: 20050101, end: 20060901
  2. METHOTREXATE [Concomitant]
     Route: 065
  3. UNSPECIFIED MEDICATION [Concomitant]
     Route: 065

REACTIONS (2)
  - APLASTIC ANAEMIA [None]
  - RENAL FAILURE [None]
